FAERS Safety Report 6406211-8 (Version None)
Quarter: 2009Q4

REPORT INFORMATION
  Report Type: 
  Country: None (occurrence: None)
  Receive Date: 20091005
  Receipt Date: 20090918
  Transmission Date: 20100525
  Serious: Yes (Other)
  Sender: FDA-Public Use
  Company Number: GAM-133-09-AU

PATIENT
  Age: 11 Year
  Sex: Female

DRUGS (2)
  1. OCTAGAM [Suspect]
     Indication: NERVOUS SYSTEM DISORDER
     Dosage: 40 G I.V.
     Route: 042
     Dates: start: 20090901, end: 20090902
  2. METHYLPREDNISOLONE 4MG TAB [Concomitant]

REACTIONS (3)
  - CONVULSION [None]
  - ENTEROBACTER SEPSIS [None]
  - TRANSMISSION OF AN INFECTIOUS AGENT VIA A MEDICINAL PRODUCT [None]
